FAERS Safety Report 5820074-0 (Version None)
Quarter: 2008Q3

REPORT INFORMATION
  Report Type: 
  Country: None (occurrence: None)
  Receive Date: 20080718
  Receipt Date: 20080718
  Transmission Date: 20090109
  Serious: Yes (Hospitalization)
  Sender: FDA-Public Use
  Company Number: None

PATIENT
  Sex: Male
  Weight: 79.5 kg

DRUGS (2)
  1. FLUOROURACIL [Suspect]
     Dosage: 12200 MG
     Dates: end: 20080707
  2. ELOXATIN [Suspect]
     Dosage: 500 MG
     Dates: end: 20080630

REACTIONS (3)
  - DIARRHOEA [None]
  - PROCTALGIA [None]
  - PROCTITIS [None]
